FAERS Safety Report 15917047 (Version 1)
Quarter: 2019Q1

REPORT INFORMATION
  Report Type: Spontaneous
  Country: US (occurrence: US)
  Receive Date: 20190205
  Receipt Date: 20190205
  Transmission Date: 20190417
  Serious: Yes (Other)
  Sender: FDA-Public Use
  Company Number: None

PATIENT
  Age: 70 Year
  Sex: Female
  Weight: 112.5 kg

DRUGS (8)
  1. METOPROLOL. [Concomitant]
     Active Substance: METOPROLOL
  2. ACETAMINOPHEN PM [Concomitant]
     Active Substance: ACETAMINOPHEN\DIPHENHYDRAMINE HYDROCHLORIDE
  3. BABY ASPIRIN [Concomitant]
     Active Substance: ASPIRIN
  4. XARELTO [Suspect]
     Active Substance: RIVAROXABAN
     Indication: ATRIAL FIBRILLATION
     Dosage: ?          QUANTITY:1 TABLET(S);OTHER FREQUENCY:ONE DAILY W/DINNER;?
     Route: 048
     Dates: start: 20180202, end: 20180719
  5. TUMS (FOR CALCIUM) [Concomitant]
  6. HYDROCHLOROTHYAZIDE [Concomitant]
     Active Substance: HYDROCHLOROTHIAZIDE
  7. LEVOTHYROXIN [Concomitant]
     Active Substance: LEVOTHYROXINE
  8. GUMMI VITAMINS [Concomitant]

REACTIONS (2)
  - Vomiting [None]
  - Diarrhoea [None]

NARRATIVE: CASE EVENT DATE: 20180310
